FAERS Safety Report 7912172-2 (Version None)
Quarter: 2011Q4

REPORT INFORMATION
  Report Type: 
  Country: None (occurrence: None)
  Receive Date: 20111114
  Receipt Date: 20111104
  Transmission Date: 20120403
  Serious: Yes (Death)
  Sender: FDA-Public Use
  Company Number: US-ACTELION-A-NJ2011-56713

PATIENT

DRUGS (5)
  1. CALCIUM CHANNEL BLOCKERS [Concomitant]
  2. VENTAVIS [Suspect]
     Indication: PULMONARY ARTERIAL HYPERTENSION
     Dosage: 4 X DAILY
     Route: 055
     Dates: start: 20101028
  3. DIGOXIN [Concomitant]
  4. OXYGEN [Concomitant]
  5. COUMADIN [Concomitant]

REACTIONS (1)
  - CARDIAC DISORDER [None]
